FAERS Safety Report 14568616 (Version 1)
Quarter: 2018Q1

REPORT INFORMATION
  Report Type: Report from Study
  Country: CA (occurrence: CA)
  Receive Date: 20180223
  Receipt Date: 20180223
  Transmission Date: 20180509
  Serious: Yes (Hospitalization)
  Sender: FDA-Public Use
  Company Number: CA-ALEXION-A201801692

PATIENT
  Sex: Male
  Weight: 65 kg

DRUGS (2)
  1. STRENSIQ [Suspect]
     Active Substance: ASFOTASE ALFA
     Indication: HYPOPHOSPHATASIA
     Dosage: 130 MG, UNK
     Route: 058
     Dates: start: 20090409
  2. STRENSIQ [Suspect]
     Active Substance: ASFOTASE ALFA
     Dosage: 65 MG, SIX TIMES/WEEK
     Route: 058

REACTIONS (1)
  - Skin atrophy [Not Recovered/Not Resolved]
